FAERS Safety Report 19328028 (Version 1)
Quarter: 2021Q2

REPORT INFORMATION
  Report Type: Spontaneous
  Country: US (occurrence: US)
  Receive Date: 20210528
  Receipt Date: 20210528
  Transmission Date: 20210717
  Serious: No
  Sender: FDA-Public Use
  Company Number: US-UNITED THERAPEUTICS-UNT-2021-009617

PATIENT
  Age: 19 Day
  Sex: Male

DRUGS (2)
  1. REMODULIN [Suspect]
     Active Substance: TREPROSTINIL
     Indication: PULMONARY ARTERIAL HYPERTENSION
     Dosage: UNK, CONTINUING
     Route: 058
     Dates: start: 20210514, end: 202105
  2. REMODULIN [Suspect]
     Active Substance: TREPROSTINIL
     Dosage: 0.040 ?G/KG, CONTINUING
     Route: 058
     Dates: start: 202105

REACTIONS (5)
  - Infusion site warmth [Unknown]
  - Infusion site infection [Unknown]
  - Infusion site erythema [Unknown]
  - Infusion site discharge [Unknown]
  - Infusion site swelling [Unknown]

NARRATIVE: CASE EVENT DATE: 202105
